FAERS Safety Report 4302118-0 (Version None)
Quarter: 2004Q1

REPORT INFORMATION
  Report Type: 
  Country: None (occurrence: None)
  Receive Date: 20040220
  Receipt Date: 20040211
  Transmission Date: 20041129
  Serious: Yes (Death, Hospitalization)
  Sender: FDA-Public Use
  Company Number: US-JNJFOC-20040202679

PATIENT
  Age: 91 Year
  Sex: Female

DRUGS (4)
  1. RISPERDAL [Suspect]
     Indication: AGITATION
     Dosage: 0.25 MG, 1 IN 1 DAY, ORAL
     Route: 048
     Dates: start: 20031207, end: 20040116
  2. RISPERDAL [Suspect]
     Indication: ANXIETY
     Dosage: 0.25 MG, 1 IN 1 DAY, ORAL
     Route: 048
     Dates: start: 20031207, end: 20040116
  3. XANAX [Concomitant]
  4. PAXIL [Concomitant]

REACTIONS (4)
  - CARDIAC FAILURE CONGESTIVE [None]
  - LETHARGY [None]
  - OEDEMA PERIPHERAL [None]
  - PNEUMONIA [None]
